FAERS Safety Report 10052050 (Version 1)
Quarter: 2014Q2

REPORT INFORMATION
  Report Type: Spontaneous
  Country: GB (occurrence: GB)
  Receive Date: 20140402
  Receipt Date: 20140402
  Transmission Date: 20141212
  Serious: Yes (Other)
  Sender: FDA-Public Use
  Company Number: PHHY2014GB035675

PATIENT
  Age: 50 Year
  Sex: Male

DRUGS (9)
  1. ATENOLOL [Suspect]
     Indication: HYPERTENSION
     Dosage: 25 MG, UNK
  2. ATENOLOL [Suspect]
     Dosage: 50 MG, UNK
  3. ATENOLOL [Suspect]
     Dosage: 100 MG, QD
     Route: 048
     Dates: start: 1986, end: 201212
  4. ATENOLOL [Suspect]
     Dosage: 50 MG, QD
     Dates: start: 201308
  5. CHLORTALIDONE [Concomitant]
     Dosage: 25 MG, UNK
  6. DIAZEPAM [Concomitant]
  7. NIFEDIPINE [Concomitant]
  8. OLMETEC [Concomitant]
  9. RAMIPRIL [Concomitant]

REACTIONS (10)
  - Drug withdrawal syndrome [Recovered/Resolved]
  - Tachycardia [Recovered/Resolved]
  - Heart rate increased [Recovered/Resolved]
  - Nervousness [Recovered/Resolved]
  - Anxiety [Recovered/Resolved]
  - Feeling abnormal [Recovered/Resolved]
  - Malaise [Recovered/Resolved]
  - Muscle contractions involuntary [Recovered/Resolved]
  - Norepinephrine increased [Recovered/Resolved]
  - Blood pressure increased [Recovered/Resolved]
